FAERS Safety Report 6469740-7 (Version None)
Quarter: 2009Q4

REPORT INFORMATION
  Report Type: 
  Country: None (occurrence: None)
  Receive Date: 20091203
  Receipt Date: 20080130
  Transmission Date: 20100525
  Serious: No
  Sender: FDA-Public Use
  Company Number: US-ELI_LILLY_AND_COMPANY-US200710006832

PATIENT
  Sex: Male
  Weight: 83.447 kg

DRUGS (6)
  1. BYETTA [Suspect]
     Indication: TYPE 2 DIABETES MELLITUS
     Dosage: 5 UG, 2/D
     Route: 058
  2. BYETTA [Suspect]
     Dosage: 10 UG, 2/D
     Dates: end: 20071001
  3. AMARYL [Concomitant]
     Indication: TYPE 2 DIABETES MELLITUS
     Dosage: 1 UG, EACH MORNING
     Route: 048
  4. GLUCOPHAGE [Concomitant]
     Indication: TYPE 2 DIABETES MELLITUS
     Dosage: 1000 MG, 3/D
     Route: 048
  5. LANTUS [Concomitant]
     Dosage: UNK, UNK
  6. ACTOS [Concomitant]
     Dosage: UNK, UNKNOWN

REACTIONS (1)
  - BLOOD GLUCOSE INCREASED [None]
